FAERS Safety Report 6424114-X (Version None)
Quarter: 2009Q4

REPORT INFORMATION
  Report Type: 
  Country: None (occurrence: None)
  Receive Date: 20091102
  Receipt Date: 20091021
  Transmission Date: 20100525
  Serious: Yes (Life-Threatening, Hospitalization)
  Sender: FDA-Public Use
  Company Number: TW-AMGEN-US365175

PATIENT
  Sex: Male
  Weight: 70 kg

DRUGS (7)
  1. ENBREL [Suspect]
     Indication: RHEUMATOID ARTHRITIS
     Route: 058
     Dates: start: 20090720, end: 20090905
  2. LEFLUNOMIDE [Concomitant]
     Indication: RHEUMATOID ARTHRITIS
     Route: 048
     Dates: start: 20090305, end: 20090906
  3. CETIRIZINE HCL [Concomitant]
     Indication: RHINITIS
     Route: 048
     Dates: start: 20090824, end: 20090906
  4. METHOTREXATE [Concomitant]
     Indication: RHEUMATOID ARTHRITIS
     Route: 048
     Dates: start: 20090824, end: 20090906
  5. FOLIC ACID [Concomitant]
     Indication: HYPERHOMOCYSTEINAEMIA
     Route: 048
     Dates: start: 20090824, end: 20090906
  6. CELECOXIB [Concomitant]
     Indication: RHEUMATOID ARTHRITIS
     Route: 048
     Dates: start: 20090309, end: 20090906
  7. CIMETIDINE [Concomitant]
     Indication: PEPTIC ULCER
     Route: 048
     Dates: start: 20090309, end: 20090906

REACTIONS (2)
  - ENDOCARDITIS STAPHYLOCOCCAL [None]
  - SEPTIC SHOCK [None]
